FAERS Safety Report 17425427 (Version 2)
Quarter: 2020Q1

REPORT INFORMATION
  Report Type: Spontaneous
  Country: JP (occurrence: JP)
  Receive Date: 20200217
  Receipt Date: 20200303
  Transmission Date: 20200409
  Serious: Yes (Other)
  Sender: FDA-Public Use
  Company Number: JP-ROCHE-2550219

PATIENT
  Sex: Female

DRUGS (2)
  1. EDIROL [Concomitant]
     Active Substance: ELDECALCITOL
  2. BONVIVA [Suspect]
     Active Substance: IBANDRONATE SODIUM
     Indication: OSTEOPOROSIS
     Route: 042
     Dates: start: 2020

REACTIONS (2)
  - Fall [Unknown]
  - Atypical femur fracture [Recovered/Resolved]
